FAERS Safety Report 20317329 (Version 1)
Quarter: 2022Q1

REPORT INFORMATION
  Report Type: Report from Study
  Country: CN (occurrence: CN)
  Receive Date: 20220110
  Receipt Date: 20220110
  Transmission Date: 20220424
  Serious: Yes (Hospitalization)
  Sender: FDA-Public Use
  Company Number: CN-ELI_LILLY_AND_COMPANY-CN202112013546

PATIENT
  Age: 71 Year
  Sex: Female

DRUGS (2)
  1. HUMALOG [Suspect]
     Active Substance: INSULIN LISPRO
     Indication: Type 2 diabetes mellitus
     Dosage: 10 U, BID (8-10 UNITS, BID)
     Route: 058
     Dates: start: 2020
  2. HUMALOG [Suspect]
     Active Substance: INSULIN LISPRO
     Dosage: 4 U, BID
     Route: 058

REACTIONS (10)
  - Azotaemia [Unknown]
  - Pulmonary oedema [Unknown]
  - Pleural effusion [Unknown]
  - Blood creatinine increased [Unknown]
  - Oedema [Unknown]
  - Cardiac disorder [Unknown]
  - Hypertension [Unknown]
  - Calcium deficiency [Unknown]
  - Iron deficiency [Unknown]
  - Anaemia [Unknown]
